FAERS Safety Report 8825737 (Version 1)
Quarter: 2012Q4

REPORT INFORMATION
  Report Type: 
  Country: NL (occurrence: NL)
  Receive Date: 20121004
  Receipt Date: 20121004
  Transmission Date: 20130627
  Serious: Yes (Life-Threatening, Hospitalization)
  Sender: FDA-Public Use
  Company Number: NL-ASTRAZENECA-2000AP02002

PATIENT
  Age: 17580 Day
  Sex: Male

DRUGS (17)
  1. SEROQUEL [Suspect]
     Indication: SCHIZOPHRENIA
     Route: 048
     Dates: start: 20000405, end: 20000414
  2. SEROQUEL [Suspect]
     Indication: SCHIZOPHRENIA
     Route: 048
     Dates: start: 20000216, end: 20000404
  3. OLANZAPINE [Concomitant]
     Indication: SCHIZOPHRENIA
     Route: 048
     Dates: end: 20000414
  4. OLANZAPINE [Concomitant]
     Indication: SCHIZOPHRENIA
     Route: 048
  5. LITHIUM CARBONATE [Concomitant]
     Dosage: 0.84MMOL/L
     Route: 048
     Dates: end: 20000414
  6. NORMISON [Concomitant]
     Route: 048
  7. FLUIMUCIL [Concomitant]
     Indication: CHRONIC OBSTRUCTIVE PULMONARY DISEASE
  8. LORAZEPAM [Concomitant]
     Route: 048
  9. TREMBLEX [Concomitant]
     Route: 048
  10. MAGISTRAL HOMEOPATHIE [Concomitant]
  11. VITAMINE B COMPLEX [Concomitant]
  12. NIZORAL [Concomitant]
     Dosage: 20 mg/g
     Route: 004
  13. ALPRAZOLAM [Concomitant]
     Route: 048
  14. TRIAMCINOLONACETONIDE [Concomitant]
     Route: 004
  15. MICROLAX [Concomitant]
     Route: 054
  16. LEGENDAL [Concomitant]
     Route: 048
  17. LOSEC [Concomitant]
     Route: 048

REACTIONS (4)
  - Agranulocytosis [Recovered/Resolved]
  - Pneumonia [Recovered/Resolved]
  - Pharyngitis [Recovered/Resolved]
  - Escherichia sepsis [Recovered/Resolved]
